FAERS Safety Report 8661458 (Version 3)
Quarter: 2012Q4

REPORT INFORMATION
  Report Type: 
  Country: US (occurrence: US)
  Receive Date: 20120712
  Receipt Date: 20121128
  Transmission Date: 20130627
  Serious: Yes (Hospitalization)
  Sender: FDA-Public Use
  Company Number: PHHO2012US010275

PATIENT
  Age: 50 Year
  Sex: Male

DRUGS (33)
  1. NEORAL [Suspect]
     Indication: RENAL TRANSPLANT
     Dosage: 350 mg 1 day
     Route: 048
     Dates: start: 20060924
  2. PREDNISONE [Suspect]
     Indication: RENAL TRANSPLANT
     Dosage: 10 mg, UNK
     Dates: start: 20070725
  3. CELLCEPT [Suspect]
     Indication: RENAL TRANSPLANT
     Dosage: 500 mg, UNK
     Dates: start: 20070810
  4. ADVAIR DISKUS [Concomitant]
     Dosage: UNK
     Dates: start: 20111013
  5. ALBUTEROL [Concomitant]
     Dosage: UNK
     Dates: start: 20111013
  6. NORVASC [Concomitant]
     Dosage: UNK
     Dates: start: 20091019
  7. ASPIRIN [Concomitant]
     Dosage: UNK
     Dates: start: 20080902
  8. ATORVASTATIN [Concomitant]
     Dosage: UNK
     Dates: start: 20080306
  9. CALCITROL [Concomitant]
     Dosage: UNK
     Dates: start: 20081114
  10. CARVEDILOL [Concomitant]
     Dosage: UNK
     Dates: start: 20111026
  11. DRISDOL [Concomitant]
  12. NEXIUM [Concomitant]
     Dosage: UNK
     Dates: start: 20090520
  13. FUROSEMIDE [Concomitant]
     Dosage: UNK
     Dates: start: 20070725
  14. HYDRALAZINE [Concomitant]
     Dosage: UNK
     Dates: start: 20100401
  15. LANTUS [Concomitant]
     Dosage: UNK
     Dates: start: 20070725
  16. INSULIN [Concomitant]
     Dosage: UNK
     Dates: start: 20070725
  17. IMDUR [Concomitant]
     Dosage: UNK
     Dates: start: 20111007
  18. ISODRIL [Concomitant]
     Dosage: UNK
     Dates: start: 20111025
  19. LORTAB [Concomitant]
     Dosage: UNK
     Dates: start: 20111004
  20. MULTIPLE VITAMINS [Concomitant]
     Dosage: UNK
     Dates: start: 20070727
  21. NIFEDIPINE [Concomitant]
     Dosage: UNK
     Dates: start: 20100331
  22. OMEGA-3 FATTY ACIDS [Concomitant]
     Dosage: UNK
     Dates: start: 20080902
  23. PERCOCET [Concomitant]
     Dosage: UNK
     Dates: start: 20081210
  24. PRAVACHOL [Concomitant]
     Dosage: UNK
     Dates: start: 20080902
  25. LYRICA [Concomitant]
     Dosage: UNK
     Dates: start: 20120501
  26. PROAIR HFA [Concomitant]
     Dosage: UNK
     Dates: start: 20111013
  27. SEROQUEL [Concomitant]
     Dosage: UNK
     Dates: start: 20070715
  28. ZOLOFT [Concomitant]
     Dosage: UNK
     Dates: start: 20070725
  29. K-DUR [Concomitant]
     Dosage: UNK
     Dates: start: 20070919
  30. AZITHROMYCIN [Concomitant]
     Dosage: UNK
     Dates: start: 20081002
  31. HEPARIN [Concomitant]
  32. SPIRONOLACTONE [Concomitant]
     Dosage: UNK
     Dates: start: 20120511, end: 20120916
  33. AUGMENTIN [Concomitant]

REACTIONS (3)
  - Intracranial pressure increased [Recovered/Resolved]
  - Mental status changes [Recovered/Resolved]
  - Syncope [Recovered/Resolved]
